FAERS Safety Report 9994899 (Version 2)
Quarter: 2014Q1

REPORT INFORMATION
  Report Type: Spontaneous
  Country: US (occurrence: US)
  Receive Date: 20140311
  Receipt Date: 20140311
  Transmission Date: 20141002
  Serious: Yes (Other)
  Sender: FDA-Public Use
  Company Number: US-GE HEALTHCARE MEDICAL DIAGNOSTICS-OSCN-PR-0809S-0549

PATIENT
  Age: 54 Year
  Sex: Female

DRUGS (16)
  1. OMNISCAN [Suspect]
     Indication: HEADACHE
     Route: 042
     Dates: start: 20050826, end: 20050826
  2. OMNISCAN [Suspect]
     Indication: TINNITUS
     Route: 042
     Dates: start: 20050826, end: 20050826
  3. OMNISCAN [Suspect]
     Route: 042
     Dates: start: 20050826, end: 20050826
  4. OMNISCAN [Suspect]
     Route: 042
     Dates: start: 20050831, end: 20050831
  5. VISIPAQUE [Suspect]
  6. CARDIZEM [Concomitant]
  7. PROCRIT [Concomitant]
  8. EPOGEN [Concomitant]
  9. LOPRESSOR [Concomitant]
  10. LISINOPRIL [Concomitant]
  11. NORVASC [Concomitant]
  12. COZAAR [Concomitant]
  13. LASIX [Concomitant]
  14. LIPITOR [Concomitant]
  15. ZETIA [Concomitant]
  16. ARANESP [Concomitant]

REACTIONS (1)
  - Nephrogenic systemic fibrosis [Not Recovered/Not Resolved]
